FAERS Safety Report 6931490-8 (Version None)
Quarter: 2010Q3

REPORT INFORMATION
  Report Type: 
  Country: None (occurrence: None)
  Receive Date: 20100819
  Receipt Date: 20100818
  Transmission Date: 20110219
  Serious: Yes (Death, Life-Threatening, Hospitalization)
  Sender: FDA-Public Use
  Company Number: JP-BAYER-201010626BYL

PATIENT
  Age: 78 Year
  Sex: Female
  Weight: 41 kg

DRUGS (10)
  1. NEXAVAR [Suspect]
     Indication: HEPATIC NEOPLASM MALIGNANT
     Dosage: UNIT DOSE: 200 MG
     Route: 048
     Dates: start: 20100120, end: 20100124
  2. NEXAVAR [Suspect]
     Dosage: UNIT DOSE: 200 MG
     Route: 048
     Dates: start: 20100125, end: 20100129
  3. RENIVACE [Concomitant]
     Indication: HYPERTENSION
     Route: 048
     Dates: end: 20100209
  4. AMLODIPINE BESYLATE [Concomitant]
     Indication: HYPERTENSION
     Route: 048
     Dates: end: 20100209
  5. ZANTAC [Concomitant]
     Route: 048
     Dates: end: 20100209
  6. URSO 250 [Concomitant]
     Indication: HEPATITIS C
     Route: 048
     Dates: end: 20100209
  7. MYSLEE [Concomitant]
     Indication: INSOMNIA
     Route: 048
     Dates: end: 20100201
  8. AMINOLEBAN EN [Concomitant]
     Route: 048
     Dates: start: 20091008, end: 20100201
  9. NEO-MINOPHAGEN C [Concomitant]
     Indication: HEPATITIS C
     Route: 042
     Dates: end: 20100220
  10. LOPEMIN [Concomitant]
     Indication: DIARRHOEA
     Route: 048
     Dates: start: 20100128, end: 20100129

REACTIONS (7)
  - ABDOMINAL PAIN [None]
  - DECREASED APPETITE [None]
  - ERYTHEMA [None]
  - HEPATIC FUNCTION ABNORMAL [None]
  - HEPATIC NEOPLASM MALIGNANT [None]
  - PAIN IN EXTREMITY [None]
  - PORTAL VEIN THROMBOSIS [None]
